FAERS Safety Report 5219669-7 (Version None)
Quarter: 2007Q1

REPORT INFORMATION
  Report Type: 
  Country: None (occurrence: None)
  Receive Date: 20070125
  Receipt Date: 20070117
  Transmission Date: 20070707
  Serious: Yes (Other)
  Sender: FDA-Public Use
  Company Number: FR-PFIZER INC-2006117185

PATIENT
  Sex: Female
  Weight: 66 kg

DRUGS (11)
  1. LYRICA [Suspect]
     Indication: NEUROPATHY PERIPHERAL
  2. BETASERON [Concomitant]
     Indication: MULTIPLE SCLEROSIS
     Route: 058
  3. UTEPLEX [Concomitant]
     Indication: MUSCLE CONTRACTURE
     Route: 048
  4. TRAMADOL HCL [Concomitant]
     Indication: PAIN
     Route: 048
  5. PRAXINOR [Concomitant]
     Route: 048
  6. MAG 2 [Concomitant]
     Route: 048
  7. THIAMINE HCL [Concomitant]
     Route: 048
  8. VITAMIN B6 [Concomitant]
     Route: 048
  9. VITAMIN B-12 [Concomitant]
     Route: 048
  10. RIVOTRIL [Concomitant]
     Indication: PAIN
     Dosage: DAILY DOSE:14DROP
     Route: 048
  11. BACLOFEN [Concomitant]
     Indication: MUSCLE SPASTICITY
     Route: 048

REACTIONS (2)
  - GAIT DISTURBANCE [None]
  - HYPOTONIA [None]
